FAERS Safety Report 4302686-9 (Version None)
Quarter: 2004Q1

REPORT INFORMATION
  Report Type: 
  Country: None (occurrence: None)
  Receive Date: 20040126
  Receipt Date: 20031014
  Transmission Date: 20041129
  Serious: No
  Sender: FDA-Public Use
  Company Number: USA031049826

PATIENT
  Age: 11 Year
  Sex: Male
  Weight: 48 kg

DRUGS (3)
  1. STRATTERA [Suspect]
     Indication: ATTENTION DEFICIT/HYPERACTIVITY DISORDER
     Dosage: 40 MG/IN THE MORNING
     Dates: start: 20030726
  2. ZYRTEC [Concomitant]
  3. VITAMINS NOS [Concomitant]

REACTIONS (6)
  - DECREASED APPETITE [None]
  - DISTURBANCE IN ATTENTION [None]
  - FATIGUE [None]
  - HEADACHE [None]
  - MYDRIASIS [None]
  - SOMNOLENCE [None]
